FAERS Safety Report 5144775-5 (Version None)
Quarter: 2006Q4

REPORT INFORMATION
  Report Type: 
  Country: None (occurrence: None)
  Receive Date: 20061107
  Receipt Date: 20061013
  Transmission Date: 20070319
  Serious: Yes (Other)
  Sender: FDA-Public Use
  Company Number: PHMT2006CA01963

PATIENT
  Age: 51 Year
  Sex: Female
  Weight: 64.399 kg

DRUGS (3)
  1. CORTISONE ACETATE [Suspect]
  2. DIOVAN [Suspect]
     Indication: HYPERTENSION
     Dosage: 80MG, QD
     Route: 048
     Dates: start: 20031204, end: 20050615
  3. DIOVAN [Suspect]
     Dosage: 160 MG
     Route: 048
     Dates: start: 20050616, end: 20051107

REACTIONS (10)
  - ALVEOLITIS [None]
  - BRONCHOSPASM [None]
  - DISEASE PROGRESSION [None]
  - DYSPNOEA [None]
  - HERPES ZOSTER [None]
  - PNEUMONITIS [None]
  - RALES [None]
  - RESPIRATORY DISORDER [None]
  - SINUSITIS [None]
  - UPPER RESPIRATORY TRACT INFECTION [None]
